FAERS Safety Report 24205210 (Version 2)
Quarter: 2024Q3

REPORT INFORMATION
  Report Type: Report from Study
  Country: US (occurrence: US)
  Receive Date: 20240813
  Receipt Date: 20240819
  Transmission Date: 20241016
  Serious: Yes (Disabling)
  Sender: NOVARTIS
  Company Number: US-002147023-NVSC2024US163469

PATIENT
  Age: 61 Year
  Sex: Female
  Weight: 54.43 kg

DRUGS (3)
  1. COSENTYX [Suspect]
     Active Substance: SECUKINUMAB
     Indication: Psoriatic arthropathy
     Dosage: 300 MG/KG, QW
     Route: 065
     Dates: start: 20240719, end: 20240809
  2. COSENTYX [Suspect]
     Active Substance: SECUKINUMAB
     Indication: Nail psoriasis
  3. COSENTYX [Suspect]
     Active Substance: SECUKINUMAB
     Indication: Psoriasis

REACTIONS (2)
  - Migraine [Recovered/Resolved]
  - Migraine [Unknown]

NARRATIVE: CASE EVENT DATE: 20240806
